FAERS Safety Report 7963571-4 (Version None)
Quarter: 2011Q4

REPORT INFORMATION
  Report Type: 
  Country: None (occurrence: None)
  Receive Date: 20111208
  Receipt Date: 20111116
  Transmission Date: 20120403
  Serious: No
  Sender: FDA-Public Use
  Company Number: US-BAYER-2011-111916

PATIENT
  Sex: Male
  Weight: 90 kg

DRUGS (1)
  1. ALEVE (CAPLET) [Suspect]
     Indication: TOOTHACHE
     Dosage: UNK
     Dates: start: 20111115, end: 20111116

REACTIONS (2)
  - TOOTHACHE [None]
  - NO ADVERSE EVENT [None]
